FAERS Safety Report 7647267-4 (Version None)
Quarter: 2011Q3

REPORT INFORMATION
  Report Type: 
  Country: None (occurrence: None)
  Receive Date: 20110726
  Receipt Date: 20110719
  Transmission Date: 20111222
  Serious: Yes (Life-Threatening, Hospitalization, Disabling)
  Sender: FDA-Public Use
  Company Number: 2009SP017867

PATIENT
  Age: 52 Year
  Sex: Male

DRUGS (5)
  1. STREULI (LIDOCAINE) [Concomitant]
  2. DIPROPHOS (BETAMETHASONE SODIUM PHOSPHATE/DIPROPIONATE /00582101/) [Suspect]
     Indication: CERVICAL ROOT PAIN
     Dosage: 1 ML;ONCE;INDIS
     Route: 024
     Dates: start: 20090716, end: 20090716
  3. DIPROPHOS (BETAMETHASONE SODIUM PHOSPHATE/DIPROPIONATE /00582101/) [Suspect]
     Indication: RADICULOPATHY
     Dosage: 1 ML;ONCE;INDIS
     Route: 024
     Dates: start: 20090716, end: 20090716
  4. DIPROPHOS (BETAMETHASONE SODIUM PHOSPHATE/DIPROPIONATE /00582101/) [Suspect]
     Indication: INTERVERTEBRAL DISC DISORDER
     Dosage: 1 ML;ONCE;INDIS
     Route: 024
     Dates: start: 20090716, end: 20090716
  5. XYLOCAINE [Concomitant]

REACTIONS (11)
  - ATAXIA [None]
  - SOMNOLENCE [None]
  - HEADACHE [None]
  - MALAISE [None]
  - DECREASED VIBRATORY SENSE [None]
  - HYPOTENSION [None]
  - HYPOAESTHESIA [None]
  - IVTH NERVE PARALYSIS [None]
  - VERTIGO [None]
  - NAUSEA [None]
  - QUADRIPLEGIA [None]
